FAERS Safety Report 16857410 (Version 2)
Quarter: 2020Q3

REPORT INFORMATION
  Report Type: Spontaneous
  Country: US (occurrence: US)
  Receive Date: 20190926
  Receipt Date: 20200828
  Transmission Date: 20201102
  Serious: Yes (Hospitalization, Other)
  Sender: FDA-Public Use
  Company Number: US-GILEAD-2019-0429347

PATIENT
  Age: 54 Year
  Sex: Male

DRUGS (33)
  1. TRUVADA [Suspect]
     Active Substance: EMTRICITABINE\TENOFOVIR DISOPROXIL FUMARATE
     Dosage: UNK
     Route: 065
     Dates: start: 200909, end: 201606
  2. ZIAGEN [Concomitant]
     Active Substance: ABACAVIR SULFATE
  3. B?COMPLEX [VITAMIN B COMPLEX] [Concomitant]
  4. HEPARIN [Concomitant]
     Active Substance: HEPARIN SODIUM
  5. JANUVIA [Concomitant]
     Active Substance: SITAGLIPTIN PHOSPHATE
  6. NITROFURANTOIN. [Concomitant]
     Active Substance: NITROFURANTOIN
  7. OXYBUTIN [Concomitant]
     Active Substance: OXYBUTYNIN
  8. HCTZ [Concomitant]
     Active Substance: HYDROCHLOROTHIAZIDE
     Dosage: UNK
  9. TAMSULOSIN [Concomitant]
     Active Substance: TAMSULOSIN
     Dosage: UNK
  10. ALTEPLASE. [Concomitant]
     Active Substance: ALTEPLASE
  11. ATORVASTATIN [Concomitant]
     Active Substance: ATORVASTATIN
     Dosage: UNK
  12. DEXTROSE. [Concomitant]
     Active Substance: DEXTROSE
  13. LEVOTHYROXINE. [Concomitant]
     Active Substance: LEVOTHYROXINE
     Dosage: UNK
  14. SENNA AND DOCUSATE SODIUM [Concomitant]
     Active Substance: DOCUSATE SODIUM\SENNOSIDES
  15. TRUVADA [Suspect]
     Active Substance: EMTRICITABINE\TENOFOVIR DISOPROXIL FUMARATE
     Indication: HIV INFECTION
     Dosage: UNK
     Route: 048
     Dates: start: 20090819, end: 20090914
  16. REYATAZ [Concomitant]
     Active Substance: ATAZANAVIR SULFATE
  17. VIAGRA [Concomitant]
     Active Substance: SILDENAFIL CITRATE
  18. KALETRA [Concomitant]
     Active Substance: LOPINAVIR\RITONAVIR
  19. METFORMIN [Concomitant]
     Active Substance: METFORMIN HYDROCHLORIDE
  20. CIPROFLOXACIN. [Concomitant]
     Active Substance: CIPROFLOXACIN
  21. VALIUM [Concomitant]
     Active Substance: DIAZEPAM
  22. LISINOPRIL. [Concomitant]
     Active Substance: LISINOPRIL
  23. ZOFRAN [Concomitant]
     Active Substance: ONDANSETRON HYDROCHLORIDE
  24. ISENTRESS [Concomitant]
     Active Substance: RALTEGRAVIR POTASSIUM
  25. NORVIR [Concomitant]
     Active Substance: RITONAVIR
  26. NOVOLOG [Concomitant]
     Active Substance: INSULIN ASPART
     Dosage: UNK
  27. PHENERGAN [Concomitant]
     Active Substance: PROMETHAZINE HYDROCHLORIDE
  28. PROSCAR [Concomitant]
     Active Substance: FINASTERIDE
     Dosage: UNK
  29. VITAMIN D [VITAMIN D NOS] [Concomitant]
     Active Substance: VITAMIN D NOS
     Dosage: UNK
  30. ATRIPLA [Suspect]
     Active Substance: EFAVIRENZ\EMTRICITABINE\TENOFOVIR DISOPROXIL FUMARATE
     Indication: HIV INFECTION
     Dosage: UNK
     Route: 048
     Dates: start: 20090819, end: 20090914
  31. EPIVIR [Concomitant]
     Active Substance: LAMIVUDINE
  32. AZITHROMYCIN ANHYDROUS. [Concomitant]
     Active Substance: AZITHROMYCIN ANHYDROUS
  33. CEPHALEXIN [CEFALEXIN] [Concomitant]
     Active Substance: CEPHALEXIN

REACTIONS (10)
  - Loss of personal independence in daily activities [Not Recovered/Not Resolved]
  - Emotional distress [Not Recovered/Not Resolved]
  - Anhedonia [Not Recovered/Not Resolved]
  - Renal failure [Not Recovered/Not Resolved]
  - Fear [Not Recovered/Not Resolved]
  - Economic problem [Not Recovered/Not Resolved]
  - Chronic kidney disease [Not Recovered/Not Resolved]
  - Quality of life decreased [Not Recovered/Not Resolved]
  - Pain [Not Recovered/Not Resolved]
  - Anxiety [Not Recovered/Not Resolved]

NARRATIVE: CASE EVENT DATE: 201606
